FAERS Safety Report 5638500-9 (Version None)
Quarter: 2008Q1

REPORT INFORMATION
  Report Type: 
  Country: None (occurrence: None)
  Receive Date: 20080226
  Receipt Date: 20070131
  Transmission Date: 20080703
  Serious: No
  Sender: FDA-Public Use
  Company Number: A0637786A

PATIENT
  Age: 43 Year
  Sex: Male

DRUGS (1)
  1. IMITREX [Suspect]
     Indication: MIGRAINE
     Dosage: 6MG AS REQUIRED
     Route: 058
     Dates: start: 20070127

REACTIONS (4)
  - DRUG ADMINISTRATION ERROR [None]
  - EYE IRRITATION [None]
  - OCULAR HYPERAEMIA [None]
  - PHARMACEUTICAL PRODUCT COMPLAINT [None]
